FAERS Safety Report 22770643 (Version 2)
Quarter: 2023Q4

REPORT INFORMATION
  Report Type: Spontaneous
  Country: FR (occurrence: FR)
  Receive Date: 20230801
  Receipt Date: 20231026
  Transmission Date: 20240110
  Serious: No
  Sender: FDA-Public Use
  Company Number: FR-BECTON DICKINSON-FR-BD-23-000263

PATIENT
  Sex: Female

DRUGS (1)
  1. CHLORAPREP WITH TINT [Suspect]
     Active Substance: CHLORHEXIDINE GLUCONATE\ISOPROPYL ALCOHOL
     Indication: Product used for unknown indication
     Dosage: UNK
     Route: 003
     Dates: start: 20230712, end: 20230712

REACTIONS (1)
  - Device material issue [Unknown]

NARRATIVE: CASE EVENT DATE: 20230712
